FAERS Safety Report 5298938-9 (Version None)
Quarter: 2007Q2

REPORT INFORMATION
  Report Type: 
  Country: None (occurrence: None)
  Receive Date: 20070417
  Receipt Date: 20070405
  Transmission Date: 20071010
  Serious: Yes (Hospitalization, Other)
  Sender: FDA-Public Use
  Company Number: US-AMGEN-US216263

PATIENT
  Sex: Male
  Weight: 89.9 kg

DRUGS (8)
  1. ARANESP [Suspect]
     Indication: RENAL FAILURE CHRONIC
     Route: 058
     Dates: start: 20060801
  2. COUMADIN [Concomitant]
     Route: 065
  3. FUROSEMIDE [Concomitant]
     Route: 065
  4. LISINOPRIL [Concomitant]
     Route: 065
  5. PREDNISONE TAB [Concomitant]
     Route: 065
  6. ALLOPURINOL [Concomitant]
     Route: 065
  7. DIGOXIN [Concomitant]
     Route: 065
  8. VERAPAMIL [Concomitant]
     Route: 065

REACTIONS (11)
  - ACUTE MYOCARDIAL INFARCTION [None]
  - ANAEMIA [None]
  - CELLULITIS [None]
  - GASTROINTESTINAL HAEMORRHAGE [None]
  - GOUT [None]
  - HYPERSENSITIVITY [None]
  - INJECTION SITE IRRITATION [None]
  - PERIPHERAL VASCULAR DISORDER [None]
  - PRURITUS GENERALISED [None]
  - RASH PAPULAR [None]
  - RENAL FAILURE ACUTE [None]
